FAERS Safety Report 26059446 (Version 1)
Quarter: 2025Q4

REPORT INFORMATION
  Report Type: Report from Study
  Country: US (occurrence: US)
  Receive Date: 20251118
  Receipt Date: 20251118
  Transmission Date: 20260118
  Serious: Yes (Other)
  Sender: ALEXION PHARMACEUTICALS
  Company Number: US-AstraZeneca-CH-00991021A

PATIENT
  Sex: Female

DRUGS (2)
  1. DAPAGLIFLOZIN [Suspect]
     Active Substance: DAPAGLIFLOZIN
     Dosage: 5 MILLIGRAM, QD
  2. TRULICITY [Concomitant]
     Active Substance: DULAGLUTIDE
     Dosage: UNK
     Route: 065

REACTIONS (2)
  - Impaired gastric emptying [Unknown]
  - Irritable bowel syndrome [Unknown]
